FAERS Safety Report 20327258 (Version 1)
Quarter: 2022Q1

REPORT INFORMATION
  Report Type: Spontaneous
  Country: US (occurrence: None)
  Receive Date: 20220112
  Receipt Date: 20220112
  Transmission Date: 20220423
  Serious: Yes (Hospitalization)
  Sender: FDA-Public Use
  Company Number: None

PATIENT
  Age: 73 Year
  Sex: Male
  Weight: 62. kg

DRUGS (1)
  1. EMPAGLIFLOZIN [Suspect]
     Active Substance: EMPAGLIFLOZIN
     Indication: Diabetes mellitus
     Dosage: FREQUENCY : DAILY;?
     Route: 048
     Dates: start: 20210928, end: 20211122

REACTIONS (8)
  - Anion gap increased [None]
  - Diabetic ketoacidosis [None]
  - Emphysematous cystitis [None]
  - Flatulence [None]
  - Prostatomegaly [None]
  - Hydronephrosis [None]
  - Klebsiella test positive [None]
  - Urinary tract infection [None]

NARRATIVE: CASE EVENT DATE: 20211122
